FAERS Safety Report 4316216-9 (Version None)
Quarter: 2004Q1

REPORT INFORMATION
  Report Type: 
  Country: None (occurrence: None)
  Receive Date: 20040312
  Receipt Date: 20040304
  Transmission Date: 20041129
  Serious: Yes (Hospitalization)
  Sender: FDA-Public Use
  Company Number: WAES 0403USA00397

PATIENT
  Age: 55 Year
  Sex: Female

DRUGS (3)
  1. [THERAPY UNSPECIFIED] [Concomitant]
  2. CRIXIVAN [Suspect]
     Indication: PROPHYLAXIS
     Route: 048
     Dates: start: 20000707, end: 20000801
  3. COMBIVIR [Suspect]
     Dates: start: 20000707, end: 20000801

REACTIONS (13)
  - ASTHENIA [None]
  - ATAXIA [None]
  - CYTOMEGALOVIRUS INFECTION [None]
  - EPSTEIN-BARR VIRUS INFECTION [None]
  - FAECAL INCONTINENCE [None]
  - FLATULENCE [None]
  - GASTRITIS EROSIVE [None]
  - HALLUCINATION [None]
  - HYPOTHYROIDISM [None]
  - MEMORY IMPAIRMENT [None]
  - MENTAL IMPAIRMENT [None]
  - NAUSEA [None]
  - SLEEP DISORDER [None]
